FAERS Safety Report 9251494 (Version 5)
Quarter: 2014Q1

REPORT INFORMATION
  Report Type: Report from Study
  Country: JP (occurrence: JP)
  Receive Date: 20130424
  Receipt Date: 20140124
  Transmission Date: 20141002
  Serious: Yes (Other)
  Sender: FDA-Public Use
  Company Number: JP-AMGEN-JPNCT2013028402

PATIENT
  Age: 66 Year
  Sex: Male
  Weight: 80 kg

DRUGS (16)
  1. DENOSUMAB [Suspect]
     Indication: METASTASES TO BONE
     Dosage: 120 MG/2012/10/18, 11/19, 12/26, 2013/01/24, 2/25, 03/25
     Route: 058
     Dates: start: 20121018, end: 20130325
  2. ONETAXOTERE [Concomitant]
     Dosage: UNK
     Route: 065
     Dates: start: 20121022, end: 20121022
  3. TS-1 [Concomitant]
     Dosage: UNK
     Route: 065
     Dates: start: 20121029, end: 20130214
  4. METHYCOBAL [Concomitant]
     Dosage: UNK
     Route: 042
     Dates: start: 20111128, end: 20120202
  5. DECADRON [Concomitant]
     Dosage: UNK
     Route: 065
     Dates: start: 20111219, end: 20121022
  6. JUVELA [Concomitant]
     Dosage: 50-150MG
     Route: 048
     Dates: start: 20120217
  7. LOXONIN [Concomitant]
     Route: 048
     Dates: start: 20111128, end: 20130123
  8. UNASYN S [Concomitant]
     Dosage: UNK
     Route: 042
     Dates: start: 20111215, end: 20111226
  9. ALOXI [Concomitant]
     Dosage: UNK
     Route: 042
     Dates: start: 20111219, end: 20120223
  10. CALCIUM LACTATE [Concomitant]
     Route: 048
     Dates: start: 20121105
  11. ALIMTA [Concomitant]
     Dosage: UNKNOWN
     Route: 065
     Dates: start: 20111219, end: 20120223
  12. CARBOPLATIN [Concomitant]
     Dosage: UNKNOWN
     Route: 065
     Dates: start: 20111219, end: 20120223
  13. AVASTIN                            /00848101/ [Concomitant]
     Dosage: UNKNOWN
     Route: 065
     Dates: start: 20111219, end: 20120823
  14. TARCEVA [Concomitant]
     Dosage: UNKNOWN
     Route: 065
     Dates: start: 20120315, end: 20120823
  15. LOXOPROFEN [Concomitant]
     Route: 048
     Dates: start: 20130124
  16. FOLIAMIN [Concomitant]
     Route: 048
     Dates: start: 20111128, end: 20120328

REACTIONS (1)
  - Osteonecrosis of jaw [Not Recovered/Not Resolved]
